FAERS Safety Report 12687386 (Version 2)
Quarter: 2016Q4

REPORT INFORMATION
  Report Type: Spontaneous
  Country: IE (occurrence: IE)
  Receive Date: 20160826
  Receipt Date: 20161014
  Transmission Date: 20170207
  Serious: Yes (Other)
  Sender: FDA-Public Use
  Company Number: IE-009507513-1608IRL012278

PATIENT
  Age: 24 Year
  Sex: Female
  Weight: 53 kg

DRUGS (3)
  1. IMPLANON [Suspect]
     Active Substance: ETONOGESTREL
     Indication: CONTRACEPTION
     Dosage: LEFT ARM IMPLANT
     Route: 058
     Dates: start: 20160614, end: 20160817
  2. IMPLANON [Suspect]
     Active Substance: ETONOGESTREL
     Dosage: RIGHT ARM IMPLANT
     Route: 059
     Dates: start: 20160927
  3. IMPLANON [Suspect]
     Active Substance: ETONOGESTREL
     Dosage: UNK
     Route: 059
     Dates: end: 20160614

REACTIONS (2)
  - Wound infection staphylococcal [Recovered/Resolved]
  - Device expulsion [Recovered/Resolved]

NARRATIVE: CASE EVENT DATE: 20160619
